FAERS Safety Report 8470506-7 (Version None)
Quarter: 2012Q2

REPORT INFORMATION
  Report Type: 
  Country: None (occurrence: None)
  Receive Date: 20120627
  Receipt Date: 20110901
  Transmission Date: 20120825
  Serious: No
  Sender: FDA-Public Use
  Company Number: US-MYLANLABS-2011S1018509

PATIENT
  Age: 66 Year
  Sex: Female

DRUGS (8)
  1. PRILOSEC [Concomitant]
  2. LOPRESSOR [Concomitant]
  3. SINGULAIR [Concomitant]
  4. SYMBICORT [Concomitant]
  5. PERFOROMIST [Suspect]
     Indication: DYSPNOEA
     Route: 055
     Dates: start: 20110829
  6. XOPENEX [Concomitant]
  7. RELAFEN [Concomitant]
     Indication: ARTHRITIS
  8. PREDNISONE TAB [Concomitant]

REACTIONS (3)
  - INSOMNIA [None]
  - DYSPNOEA [None]
  - HEART RATE IRREGULAR [None]
